FAERS Safety Report 4787310-3 (Version None)
Quarter: 2005Q3

REPORT INFORMATION
  Report Type: 
  Country: None (occurrence: None)
  Receive Date: 20050926
  Receipt Date: 20050711
  Transmission Date: 20060218
  Serious: No
  Sender: FDA-Public Use
  Company Number: 215999

PATIENT
  Age: 9 Year
  Sex: Male

DRUGS (1)
  1. AVASTIN(BEVACIZUMAB) PWDR + SOLVENT, INFUSION SOLN, 100MG [Suspect]
     Indication: GLIOMA
     Dates: start: 20050613

REACTIONS (1)
  - BLISTER [None]
